FAERS Safety Report 14260761 (Version 4)
Quarter: 2017Q4

REPORT INFORMATION
  Report Type: Spontaneous
  Country: US (occurrence: US)
  Receive Date: 20171207
  Receipt Date: 20171222
  Transmission Date: 20180321
  Serious: Yes (Hospitalization)
  Sender: FDA-Public Use
  Company Number: US-CELGENEUS-USA-20171110164

PATIENT
  Age: 71 Year
  Sex: Female
  Weight: 128.48 kg

DRUGS (1)
  1. REVLIMID [Suspect]
     Active Substance: LENALIDOMIDE
     Indication: PLASMA CELL MYELOMA
     Dosage: 10 MILLIGRAM
     Route: 048
     Dates: start: 201707

REACTIONS (2)
  - Cystitis [Recovering/Resolving]
  - Enterococcal infection [Recovering/Resolving]

NARRATIVE: CASE EVENT DATE: 20171125
